FAERS Safety Report 9601729 (Version 1)
Quarter: 2013Q4

REPORT INFORMATION
  Report Type: Spontaneous
  Country: GB (occurrence: GB)
  Receive Date: 20131007
  Receipt Date: 20131007
  Transmission Date: 20140711
  Serious: Yes (Hospitalization, Other)
  Sender: FDA-Public Use
  Company Number: GB-ROCHE-1283032

PATIENT
  Age: 41 Year
  Sex: Female
  Weight: 50 kg

DRUGS (7)
  1. RIBAVIRIN [Suspect]
     Indication: HEPATITIS C
     Route: 048
     Dates: start: 20130219
  2. RIBAVIRIN [Suspect]
     Dosage: DOSE REDUCED
     Route: 048
     Dates: start: 20130319
  3. PEG-INTERFERON ALFA 2A [Suspect]
     Indication: HEPATITIS C
     Route: 058
     Dates: start: 20130219
  4. INCIVO [Suspect]
     Indication: HEPATITIS C
     Route: 048
     Dates: start: 20130219, end: 20130416
  5. METOCLOPRAMIDE [Concomitant]
     Route: 065
     Dates: start: 20130305
  6. ANUSOL (UNITED KINGDOM) [Concomitant]
     Route: 061
     Dates: start: 20130319
  7. TRAMADOL [Concomitant]
     Indication: PRODUCT USED FOR UNKNOWN INDICATION
     Route: 065

REACTIONS (11)
  - Anaemia [Recovered/Resolved]
  - Platelet count decreased [Unknown]
  - Epistaxis [Recovered/Resolved]
  - Blood potassium decreased [Not Recovered/Not Resolved]
  - Blood count abnormal [Not Recovered/Not Resolved]
  - Restless legs syndrome [Unknown]
  - Pruritus [Unknown]
  - Thirst [Unknown]
  - Skin burning sensation [Unknown]
  - Insomnia [Unknown]
  - Nausea [Recovered/Resolved]
